FAERS Safety Report 8862402 (Version 1)
Quarter: 2012Q4

REPORT INFORMATION
  Report Type: 
  Country: BR (occurrence: BR)
  Receive Date: 20121026
  Receipt Date: 20121026
  Transmission Date: 20130627
  Serious: Yes (Other)
  Sender: FDA-Public Use
  Company Number: BR-PFIZER INC-2012261638

PATIENT
  Age: 48 Year
  Sex: Female
  Weight: 48 kg

DRUGS (1)
  1. DEPO-PROVERA [Suspect]
     Indication: CONTRACEPTION
     Dosage: 150 mg, UNK
     Dates: start: 2006, end: 201105

REACTIONS (9)
  - Haemorrhage [Unknown]
  - Hepatic neoplasm [Unknown]
  - Neoplasm [Unknown]
  - Anaemia [Unknown]
  - Hormone level abnormal [Unknown]
  - Fluid retention [Unknown]
  - Weight increased [Not Recovered/Not Resolved]
  - Oedema peripheral [Unknown]
  - Abdominal distension [Unknown]
